FAERS Safety Report 6307083-2 (Version None)
Quarter: 2009Q3

REPORT INFORMATION
  Report Type: 
  Country: None (occurrence: None)
  Receive Date: 20090812
  Receipt Date: 20090731
  Transmission Date: 20100115
  Serious: Yes (Hospitalization)
  Sender: FDA-Public Use
  Company Number: US-GENENTECH-283545

PATIENT
  Sex: Female
  Weight: 72 kg

DRUGS (10)
  1. TRASTUZUMAB [Suspect]
     Indication: BREAST CANCER
     Dosage: 510 MG, Q3W
     Route: 042
     Dates: start: 20090130
  2. AVASTIN [Suspect]
     Indication: BREAST CANCER
     Dosage: 1275 MG, Q3W
     Route: 042
     Dates: start: 20090130, end: 20090522
  3. DOCETAXEL [Suspect]
     Indication: BREAST CANCER
     Dosage: 139 MG, Q3W
     Route: 042
     Dates: start: 20090130, end: 20090522
  4. CARBOPLATIN [Suspect]
     Indication: BREAST CANCER
     Dosage: 586 MG, Q3W
     Route: 042
     Dates: start: 20090130, end: 20090522
  5. LORAZEPAM [Concomitant]
     Indication: DRUG USE FOR UNKNOWN INDICATION
     Dosage: UNK
  6. PAROXETINE [Concomitant]
     Indication: DRUG USE FOR UNKNOWN INDICATION
     Dosage: UNK
  7. SIMVASTATIN [Concomitant]
     Indication: DRUG USE FOR UNKNOWN INDICATION
     Dosage: UNK
  8. LOVASTATIN [Concomitant]
     Indication: DRUG USE FOR UNKNOWN INDICATION
     Dosage: UNK
  9. MECLIZINE [Concomitant]
     Indication: DRUG USE FOR UNKNOWN INDICATION
     Dosage: UNK
  10. COMPAZINE [Concomitant]
     Indication: DRUG USE FOR UNKNOWN INDICATION
     Dosage: UNK

REACTIONS (2)
  - REVERSIBLE POSTERIOR LEUKOENCEPHALOPATHY SYNDROME [None]
  - URINARY TRACT INFECTION [None]
